FAERS Safety Report 19477268 (Version 3)
Quarter: 2022Q4

REPORT INFORMATION
  Report Type: Report from Study
  Country: US (occurrence: US)
  Receive Date: 20210630
  Receipt Date: 20221128
  Transmission Date: 20230113
  Serious: Yes (Other)
  Sender: FDA-Public Use
  Company Number: US-SHIRE-US201935050AA

PATIENT
  Age: 53 Year
  Sex: Female

DRUGS (2)
  1. HUMAN IMMUNOGLOBULIN G [Suspect]
     Active Substance: HUMAN IMMUNOGLOBULIN G
     Indication: Primary immunodeficiency syndrome
     Dosage: 20 GRAM, 1/WEEK
     Route: 058
  2. HUMAN IMMUNOGLOBULIN G [Suspect]
     Active Substance: HUMAN IMMUNOGLOBULIN G
     Indication: Immunodeficiency common variable

REACTIONS (13)
  - Pneumonia [Unknown]
  - Upper respiratory tract infection [Unknown]
  - Fluid retention [Unknown]
  - Illness [Unknown]
  - Lung disorder [Unknown]
  - Fall [Unknown]
  - Hand fracture [Unknown]
  - Head injury [Unknown]
  - Contusion [Unknown]
  - Oxygen saturation decreased [Recovering/Resolving]
  - Malaise [Recovering/Resolving]
  - Fatigue [Recovering/Resolving]
  - Device leakage [Recovering/Resolving]

NARRATIVE: CASE EVENT DATE: 20210624
